FAERS Safety Report 4303747-0 (Version None)
Quarter: 2004Q1

REPORT INFORMATION
  Report Type: 
  Country: None (occurrence: None)
  Receive Date: 20040223
  Receipt Date: 20040204
  Transmission Date: 20041129
  Serious: Yes (Death)
  Sender: FDA-Public Use
  Company Number: 234471

PATIENT
  Age: 33 Year
  Sex: Female
  Weight: 55 kg

DRUGS (14)
  1. NIASTASE (EPTACOG ALFA  (ACTIVATED))POWDER FOR INJECTION [Suspect]
     Indication: HELLP SYNDROME
     Dosage: 2.4 + 4.8 MG; INTRAVENOUS
     Route: 042
     Dates: start: 20031202, end: 20031202
  2. NIASTASE (EPTACOG ALFA  (ACTIVATED))POWDER FOR INJECTION [Suspect]
     Dosage: 2.4 + 1.2 MG; INTRAVENOUS
     Route: 042
     Dates: start: 20031202, end: 20031202
  3. NIASTASE (EPTACOG ALFA  (ACTIVATED))POWDER FOR INJECTION [Suspect]
     Dosage: 2.4 + 1.2 MG; INTRAVENOUS
     Route: 042
     Dates: start: 20031202, end: 20031202
  4. . [Concomitant]
  5. NIASTASE (EPTACOG ALFA  (ACTIVATED))POWDER FOR INJECTION [Suspect]
     Route: 065
     Dates: start: 20031202, end: 20031202
  6. NIASTASE (EPTACOG ALFA  (ACTIVATED))POWDER FOR INJECTION [Suspect]
     Route: 065
     Dates: start: 20031202, end: 20031202
  7. NIASTASE (EPTACOG ALFA  (ACTIVATED))POWDER FOR INJECTION [Suspect]
     Route: 065
     Dates: start: 20031202, end: 20031202
  8. TRANEXAMIC ACID [Concomitant]
  9. FRAGMIN [Concomitant]
  10. RED BLOOD CELLS [Concomitant]
  11. PLATELETS [Concomitant]
  12. PLASMA [Concomitant]
  13. HEMABATE (CARBOPROST TROMETAMOL) [Concomitant]
  14. SYNTOCINON [Concomitant]

REACTIONS (8)
  - ACUTE MYOCARDIAL INFARCTION [None]
  - CARDIAC ARREST [None]
  - CORONARY ARTERY THROMBOSIS [None]
  - HAEMOLYSIS [None]
  - OEDEMA PERIPHERAL [None]
  - SEPSIS [None]
  - TRANSFUSION REACTION [None]
  - VENTRICLE RUPTURE [None]
